FAERS Safety Report 24058388 (Version 2)
Quarter: 2024Q3

REPORT INFORMATION
  Report Type: Spontaneous
  Country: US (occurrence: US)
  Receive Date: 20240708
  Receipt Date: 20240722
  Transmission Date: 20241017
  Serious: Yes (Hospitalization)
  Sender: TEVA
  Company Number: US-TEVA-VS-3213973

PATIENT
  Age: 73 Year
  Sex: Male

DRUGS (1)
  1. HYDRALAZINE [Suspect]
     Active Substance: HYDRALAZINE HYDROCHLORIDE
     Indication: Hypertension
     Route: 065

REACTIONS (4)
  - Glomerulonephritis [Recovered/Resolved]
  - Acute febrile neutrophilic dermatosis [Unknown]
  - Lupus-like syndrome [Recovered/Resolved]
  - Acute kidney injury [Recovered/Resolved]
